FAERS Safety Report 17098421 (Version 1)
Quarter: 2019Q4

REPORT INFORMATION
  Report Type: Spontaneous
  Country: US (occurrence: US)
  Receive Date: 20191202
  Receipt Date: 20191202
  Transmission Date: 20200122
  Serious: No
  Sender: FDA-Public Use
  Company Number: US-PFIZER INC-2019510290

PATIENT
  Age: 8 Year
  Sex: Female

DRUGS (2)
  1. EUCRISA [Suspect]
     Active Substance: CRISABOROLE
     Dosage: AS NEEDED (TWICE DAILY)
     Dates: start: 2019
  2. EUCRISA [Suspect]
     Active Substance: CRISABOROLE
     Indication: ECZEMA
     Dosage: 2X/DAY (FOUR MONTH)
     Dates: start: 2018

REACTIONS (2)
  - Therapeutic product effect incomplete [Unknown]
  - Application site pain [Unknown]
